FAERS Safety Report 25066403 (Version 1)
Quarter: 2025Q1

REPORT INFORMATION
  Report Type: Spontaneous
  Country: FR (occurrence: FR)
  Receive Date: 20250312
  Receipt Date: 20250312
  Transmission Date: 20250409
  Serious: Yes (Death, Other)
  Sender: CELLTRION
  Company Number: None

PATIENT

DRUGS (2)
  1. INFLIXIMAB [Suspect]
     Active Substance: INFLIXIMAB
     Indication: Sarcoidosis
     Route: 042
     Dates: start: 20240606, end: 20240717
  2. PREDNISONE [Suspect]
     Active Substance: PREDNISONE
     Indication: Sarcoidosis
     Route: 048
     Dates: start: 20240524, end: 20240721

REACTIONS (3)
  - Hanging [Fatal]
  - Completed suicide [Fatal]
  - Intentional product use issue [Unknown]
